FAERS Safety Report 13193048 (Version 1)
Quarter: 2017Q1

REPORT INFORMATION
  Report Type: Other
  Country: None (occurrence: DE)
  Receive Date: 20170207
  Receipt Date: 20170207
  Transmission Date: 20170428
  Serious: Yes (Disabling, Other)
  Sender: FDA-Public Use
  Company Number: DE-MEDAC PHARMA, INC.-1062832

PATIENT
  Age: 13 Year
  Sex: Male

DRUGS (6)
  1. ETOPOSIDE. [Suspect]
     Active Substance: ETOPOSIDE
  2. VINCRISTINE SULFATE. [Suspect]
     Active Substance: VINCRISTINE SULFATE
  3. METHOTREXATE. [Suspect]
     Active Substance: METHOTREXATE
     Indication: NON-HODGKIN^S LYMPHOMA
  4. DOXORUBICIN HYDROCHLORIDE. [Suspect]
     Active Substance: DOXORUBICIN HYDROCHLORIDE
  5. DEXAMETHASONE. [Suspect]
     Active Substance: DEXAMETHASONE
  6. CYCLOPHOSPHAMIDE. [Suspect]
     Active Substance: CYCLOPHOSPHAMIDE

REACTIONS (5)
  - Haematotoxicity [Unknown]
  - Haematuria [Recovered/Resolved]
  - Hepatotoxicity [Unknown]
  - Neuropathy peripheral [Recovering/Resolving]
  - Disease progression [Recovering/Resolving]
